FAERS Safety Report 20391657 (Version 3)
Quarter: 2022Q2

REPORT INFORMATION
  Report Type: Spontaneous
  Country: US (occurrence: US)
  Receive Date: 20220128
  Receipt Date: 20220406
  Transmission Date: 20220721
  Serious: No
  Sender: FDA-Public Use
  Company Number: US-ViiV Healthcare Limited-74288

PATIENT
  Age: 66 Year
  Sex: Male

DRUGS (5)
  1. CABENUVA [Suspect]
     Active Substance: CABOTEGRAVIR\RILPIVIRINE
     Indication: Product used for unknown indication
     Dosage: UNK 3ML
     Route: 030
     Dates: start: 20220113
  2. CABENUVA [Suspect]
     Active Substance: CABOTEGRAVIR\RILPIVIRINE
     Dosage: UNK
     Dates: start: 20220323
  3. CABENUVA [Suspect]
     Active Substance: CABOTEGRAVIR\RILPIVIRINE
  4. VOCABRIA [Concomitant]
     Active Substance: CABOTEGRAVIR SODIUM
     Indication: Product used for unknown indication
     Dosage: UNK
     Route: 048
  5. EDURANT [Concomitant]
     Active Substance: RILPIVIRINE HYDROCHLORIDE
     Indication: Product used for unknown indication
     Dosage: UNK
     Route: 048

REACTIONS (14)
  - Tremor [Recovered/Resolved]
  - Malaise [Not Recovered/Not Resolved]
  - Chills [Recovered/Resolved]
  - Blood pressure increased [Recovered/Resolved]
  - Injection site swelling [Recovered/Resolved]
  - Nasopharyngitis [Unknown]
  - Nausea [Unknown]
  - Vomiting [Unknown]
  - Diarrhoea [Unknown]
  - Headache [Unknown]
  - Asthenia [Unknown]
  - Anxiety [Not Recovered/Not Resolved]
  - Vision blurred [Not Recovered/Not Resolved]
  - COVID-19 [Recovered/Resolved]

NARRATIVE: CASE EVENT DATE: 20220113
